FAERS Safety Report 7967505-8 (Version None)
Quarter: 2011Q4

REPORT INFORMATION
  Report Type: 
  Country: None (occurrence: None)
  Receive Date: 20111209
  Receipt Date: 20110831
  Transmission Date: 20120403
  Serious: No
  Sender: FDA-Public Use
  Company Number: US-GLAXOSMITHKLINE-A0943217A

PATIENT
  Age: 66 Year
  Sex: Female
  Weight: 131.8 kg

DRUGS (1)
  1. AVANDAMET [Suspect]
     Indication: PRODUCT USED FOR UNKNOWN INDICATION
     Dosage: 1TAB UNKNOWN
     Route: 048
     Dates: start: 20090201

REACTIONS (1)
  - DRUG INEFFECTIVE [None]
